FAERS Safety Report 4307852-4 (Version None)
Quarter: 2004Q1

REPORT INFORMATION
  Report Type: 
  Country: None (occurrence: None)
  Receive Date: 20040226
  Receipt Date: 20030603
  Transmission Date: 20041129
  Serious: Yes (Hospitalization, Other)
  Sender: FDA-Public Use
  Company Number: 2003159694US

PATIENT
  Age: 94 Year
  Sex: Female

DRUGS (2)
  1. CELEBREX [Suspect]
     Indication: ARTHRITIS
     Dosage: 400 MG, SINGLE, ORAL 200 MG, QD, ORAL
     Route: 048
     Dates: start: 20030413, end: 20030413
  2. CELEBREX [Suspect]
     Indication: ARTHRITIS
     Dosage: 400 MG, SINGLE, ORAL 200 MG, QD, ORAL
     Route: 048
     Dates: start: 20030424, end: 20030424

REACTIONS (1)
  - RENAL FAILURE ACUTE [None]
